FAERS Safety Report 7635065-7 (Version None)
Quarter: 2011Q3

REPORT INFORMATION
  Report Type: 
  Country: None (occurrence: None)
  Receive Date: 20110718
  Receipt Date: 20110704
  Transmission Date: 20111222
  Serious: Yes (Other)
  Sender: FDA-Public Use
  Company Number: FI-ACCORD-009856

PATIENT
  Age: 65 Year
  Sex: Female

DRUGS (3)
  1. METOPROLOL TARTRATE [Concomitant]
  2. PACLITAXEL [Suspect]
     Indication: BREAST CANCER
     Dosage: 80.00-MG/M2
  3. BEVACIZUMAB(BEVACIZUMAB) [Suspect]
     Indication: BREAST CANCER
     Dosage: 10.00-MG/KG-2.0WEEKS

REACTIONS (4)
  - HYPERTENSION [None]
  - LUPUS-LIKE SYNDROME [None]
  - BLOOD ALKALINE PHOSPHATASE INCREASED [None]
  - CONDITION AGGRAVATED [None]
